FAERS Safety Report 12420096 (Version 2)
Quarter: 2016Q2

REPORT INFORMATION
  Report Type: Spontaneous
  Country: US (occurrence: US)
  Receive Date: 20160531
  Receipt Date: 20160622
  Transmission Date: 20160815
  Serious: Yes (Other)
  Sender: FDA-Public Use
  Company Number: US-PFIZER INC-3290813

PATIENT
  Age: 64 Year
  Sex: Male

DRUGS (4)
  1. ERLOTINIB [Suspect]
     Active Substance: ERLOTINIB
     Indication: PANCREATIC CARCINOMA
     Dosage: UNK, CYCLIC
  2. GEMCITABINE HYDROCHLORIDE. [Suspect]
     Active Substance: GEMCITABINE HYDROCHLORIDE
     Indication: PANCREATIC CARCINOMA
     Dosage: UNK UNK, CYCLIC
  3. CAPECITABINE. [Concomitant]
     Active Substance: CAPECITABINE
     Indication: PANCREATIC CARCINOMA
     Dosage: UNK, CYCLIC
  4. CISPLATIN. [Concomitant]
     Active Substance: CISPLATIN
     Indication: PANCREATIC CARCINOMA
     Dosage: UNK, CYCLIC

REACTIONS (2)
  - Histoplasmosis disseminated [Unknown]
  - Neutropenia [Unknown]
